FAERS Safety Report 6240998-2 (Version None)
Quarter: 2009Q2

REPORT INFORMATION
  Report Type: 
  Country: None (occurrence: None)
  Receive Date: 20090623
  Receipt Date: 20090617
  Transmission Date: 20091009
  Serious: Yes (Hospitalization, Other)
  Sender: FDA-Public Use
  Company Number: B0549176A

PATIENT
  Sex: Female
  Weight: 42 kg

DRUGS (15)
  1. FLOLAN [Suspect]
     Indication: PULMONARY ARTERIAL HYPERTENSION
     Route: 042
     Dates: start: 19980721
  2. FUROSEMIDE [Concomitant]
     Route: 048
  3. SPIRONOLACTONE [Concomitant]
     Route: 048
  4. MUCOSOLVAN [Concomitant]
     Route: 048
  5. WARFARIN POTASSIUM [Concomitant]
     Route: 048
  6. SLOW-K [Concomitant]
     Route: 048
  7. MEDICON [Concomitant]
     Route: 048
  8. FERO-GRADUMET [Concomitant]
     Route: 048
  9. CINAL [Concomitant]
     Route: 048
  10. POTASSIUM GLUCONATE TAB [Concomitant]
     Route: 048
  11. FLUTIDE [Concomitant]
     Route: 055
  12. PICILLIBACTA [Concomitant]
     Route: 042
  13. MEROPEN [Concomitant]
     Route: 042
  14. URSO 250 [Concomitant]
     Route: 048
  15. MERCAZOLE [Concomitant]
     Route: 065

REACTIONS (8)
  - BASEDOW'S DISEASE [None]
  - CARDIAC FAILURE [None]
  - CATHETER RELATED INFECTION [None]
  - CATHETER REMOVAL [None]
  - PULMONARY HAEMORRHAGE [None]
  - TACHYCARDIA [None]
  - TREMOR [None]
  - WEIGHT DECREASED [None]
